FAERS Safety Report 19790790 (Version 1)
Quarter: 2021Q3

REPORT INFORMATION
  Report Type: Spontaneous
  Country: LT (occurrence: LT)
  Receive Date: 20210906
  Receipt Date: 20210906
  Transmission Date: 20211014
  Serious: Yes (Life-Threatening, Other)
  Sender: FDA-Public Use
  Company Number: LT-BRISTOL-MYERS SQUIBB COMPANY-BMS-2021-087681

PATIENT
  Age: 55 Year
  Sex: Male
  Weight: 77 kg

DRUGS (15)
  1. FUROSEMIDE. [Concomitant]
     Active Substance: FUROSEMIDE
     Dosage: 60 MILLIGRAM, QD
     Route: 048
     Dates: start: 20210802
  2. METOPROLOL SUCCINATE. [Concomitant]
     Active Substance: METOPROLOL SUCCINATE
     Indication: HYPERTENSIVE HEART DISEASE
     Dosage: 47.5 MILLIGRAM, QD
     Route: 048
     Dates: start: 20210806
  3. FOSINOPRIL [Concomitant]
     Active Substance: FOSINOPRIL
     Indication: HYPERTENSIVE HEART DISEASE
     Dosage: 40 MILLIGRAM, QD
     Route: 048
     Dates: start: 20210802
  4. ALPHACALCIDOL [Concomitant]
     Active Substance: ALFACALCIDOL
     Indication: CHRONIC KIDNEY DISEASE
     Dosage: 0.25 MICROGRAM, QD, MEDICINE WAS USED FOR AT LEAST FOR 3 MONTHS UNTIL ADVERSE REACTIONS APPEARED
     Route: 048
     Dates: end: 20210628
  5. LEVOTHYROXINE SODIUM. [Concomitant]
     Active Substance: LEVOTHYROXINE SODIUM
     Indication: HYPOTHYROIDISM
     Dosage: 125 MICROGRAM, QDT,MEDICINE WAS USED FOR AT LEAST FOR 3 MONTHS UNTIL ADVERSE REACTIONS APPEARED AND
     Route: 048
  6. RILMENIDINE [Concomitant]
     Active Substance: RILMENIDINE
     Indication: HYPERTENSIVE HEART DISEASE
     Dosage: 1 MILLIGRAM, QD,MEDICINE WAS USED FOR AT LEAST FOR 3 MONTHS UNTIL ADVERSE REACTIONS APPEARED
     Route: 048
     Dates: start: 20210628, end: 20210802
  7. MELDONIUM DIHYDRATE. [Concomitant]
     Active Substance: MELDONIUM DIHYDRATE
     Indication: ANGINA PECTORIS
     Dosage: 1000 MILLIGRAM, QD
     Route: 048
     Dates: start: 20210806
  8. MEGESTROL ACETATE. [Concomitant]
     Active Substance: MEGESTROL ACETATE
     Indication: RENAL CANCER
     Dosage: UNK, MEDICINE WAS USED FOR AT LEAST FOR 3 MONTHS UNTIL ADVERSE REACTIONS APPEARED
     Route: 048
     Dates: end: 20210628
  9. FOSINOPRIL [Concomitant]
     Active Substance: FOSINOPRIL
     Dosage: 40 MILLIGRAM, QD, MEDICINE WAS USED FOR AT LEAST FOR 3 MONTHS UNTIL ADVERSE REACTIONS APPEARED
     Route: 048
     Dates: end: 20210629
  10. LERCANIDIPINE HYDROCHLORIDE [Concomitant]
     Active Substance: LERCANIDIPINE HYDROCHLORIDE
     Indication: HYPERTENSIVE HEART DISEASE
     Dosage: 20 MILLIGRAM, QD, MEDICINE WAS USED FOR AT LEAST FOR 3 MONTHS UNTIL ADVERSE REACTIONS APPEARED
     Route: 048
     Dates: start: 20210622, end: 20210802
  11. OPDIVO [Suspect]
     Active Substance: NIVOLUMAB
     Indication: RENAL CANCER STAGE II
     Route: 051
     Dates: start: 20200818
  12. FUROSEMIDE. [Concomitant]
     Active Substance: FUROSEMIDE
     Indication: CHRONIC KIDNEY DISEASE
     Dosage: MEDICINE WAS USED FOR AT LEAST FOR 3 MONTHS UNTIL ADVERSE REACTIONS APPEARED
     Route: 048
     Dates: end: 20210504
  13. IVABRADINE [Concomitant]
     Active Substance: IVABRADINE
     Indication: HYPERTENSIVE HEART DISEASE
     Dosage: 10 MILLIGRAM, QD, MEDICINE WAS USED FOR AT LEAST FOR 3 MONTHS UNTIL ADVERSE REACTIONS APPEARED AND I
     Route: 048
  14. DICLOFENAC SODIUM. [Concomitant]
     Active Substance: DICLOFENAC SODIUM
     Indication: OSTEOARTHRITIS
     Dosage: 150 MILLIGRAM, QD
     Route: 048
     Dates: start: 20210712, end: 20210721
  15. NEBIVOLOL. [Concomitant]
     Active Substance: NEBIVOLOL
     Indication: HYPERTENSIVE HEART DISEASE
     Dosage: 5 MILLIGRAM, QD
     Route: 048
     Dates: start: 20210628, end: 20210802

REACTIONS (6)
  - Dry mouth [Not Recovered/Not Resolved]
  - Hypophysitis [Not Recovered/Not Resolved]
  - Thirst [Not Recovered/Not Resolved]
  - Diabetes mellitus [Not Recovered/Not Resolved]
  - Adrenal insufficiency [Not Recovered/Not Resolved]
  - Pollakiuria [Not Recovered/Not Resolved]

NARRATIVE: CASE EVENT DATE: 202107
